FAERS Safety Report 21365795 (Version 2)
Quarter: 2022Q4

REPORT INFORMATION
  Report Type: Spontaneous
  Country: US (occurrence: US)
  Receive Date: 20220922
  Receipt Date: 20221007
  Transmission Date: 20230112
  Serious: Yes (Hospitalization)
  Sender: FDA-Public Use
  Company Number: US-TEVA-2022-US-2075433

PATIENT
  Age: 17 Year
  Sex: Female

DRUGS (8)
  1. FLUDARABINE [Suspect]
     Active Substance: FLUDARABINE PHOSPHATE
     Indication: Bone marrow conditioning regimen
     Route: 065
  2. HYDROCORTISONE [Suspect]
     Active Substance: HYDROCORTISONE
     Indication: BK virus infection
     Dosage: 14.2857 MILLIGRAM DAILY;
     Route: 043
  3. HYDROCORTISONE [Suspect]
     Active Substance: HYDROCORTISONE
     Indication: Viral haemorrhagic cystitis
  4. MYCOPHENOLIC ACID [Suspect]
     Active Substance: MYCOPHENOLIC ACID
     Indication: Immunosuppressant drug therapy
     Route: 065
  5. ALEMTUZUMAB [Suspect]
     Active Substance: ALEMTUZUMAB
     Indication: Bone marrow conditioning regimen
     Route: 065
  6. TACROLIMUS [Suspect]
     Active Substance: TACROLIMUS
     Indication: Immunosuppressant drug therapy
     Route: 065
  7. LIDOCAINE [Suspect]
     Active Substance: LIDOCAINE
     Indication: BK virus infection
     Dosage: 11.4286 MILLIGRAM DAILY; ADMINISTERED AFTER BEING BUFFERED WITH 2 MEQ OF BICARBONATE
     Route: 043
  8. LIDOCAINE [Suspect]
     Active Substance: LIDOCAINE
     Indication: Viral haemorrhagic cystitis

REACTIONS (3)
  - BK virus infection [Recovering/Resolving]
  - Viral haemorrhagic cystitis [Recovering/Resolving]
  - Therapy non-responder [Unknown]
